FAERS Safety Report 9593254 (Version 3)
Quarter: 2014Q1

REPORT INFORMATION
  Report Type: Spontaneous
  Country: AU (occurrence: AU)
  Receive Date: 20131004
  Receipt Date: 20140319
  Transmission Date: 20141002
  Serious: Yes (Other)
  Sender: FDA-Public Use
  Company Number: AU-ABBVIE-13P-008-1152020-00

PATIENT
  Age: 61 Year
  Sex: Male
  Weight: 104 kg

DRUGS (1)
  1. LUCRIN DEPOT [Suspect]
     Indication: PROSTATE CANCER
     Route: 030
     Dates: start: 201209

REACTIONS (7)
  - Lung neoplasm malignant [Recovering/Resolving]
  - Muscle atrophy [Recovering/Resolving]
  - Fat tissue increased [Recovering/Resolving]
  - Micturition disorder [Recovering/Resolving]
  - Bladder disorder [Recovering/Resolving]
  - Sleep disorder [Recovering/Resolving]
  - Asthenia [Recovering/Resolving]
